FAERS Safety Report 6182818-0 (Version None)
Quarter: 2009Q2

REPORT INFORMATION
  Report Type: 
  Country: None (occurrence: None)
  Receive Date: 20090507
  Receipt Date: 20090418
  Transmission Date: 20091009
  Serious: Yes (Hospitalization)
  Sender: FDA-Public Use
  Company Number: US-PFIZER INC-2009191340

PATIENT
  Sex: Male
  Weight: 78.912 kg

DRUGS (13)
  1. MARAVIROC [Suspect]
     Indication: HIV INFECTION
     Dosage: 300 MG, 2X/DAY
     Route: 048
     Dates: start: 20051027
  2. RALTEGRAVIR [Concomitant]
     Dosage: 400 MG, 2X/DAY,DAILY
     Route: 048
     Dates: start: 20090115
  3. HYDROCHLOROTHIAZIDE [Concomitant]
     Dosage: 25 MG, 1X/DAY
     Route: 048
     Dates: start: 20050624
  4. LISINOPRIL [Concomitant]
     Dosage: 20MG TAB II  1X/DAY
     Route: 048
     Dates: start: 20050604
  5. NORVASC [Concomitant]
     Dosage: 10 MG, 1X/DAY
     Route: 048
     Dates: start: 20051028
  6. DEPAKOTE [Concomitant]
     Dosage: 500 MG, 2X/DAY
     Dates: start: 20060325
  7. RIFAXIMIN [Concomitant]
     Dosage: 400 MG, 3X/DAY
     Route: 048
     Dates: start: 20070307
  8. PANTOPRAZOLE [Concomitant]
     Dosage: 40 MG, 2X/DAY
     Route: 048
     Dates: start: 20070515
  9. ZYPREXA [Concomitant]
     Dosage: UNK 2.5MG AM PO AND 5MG PM PO.
     Route: 048
     Dates: start: 20070116
  10. VITACAL [Concomitant]
     Dosage: UNK, 1 TAB
     Route: 048
     Dates: start: 20070514
  11. LORAZEPAM [Concomitant]
     Dosage: 0.5 MG, AS NEEDED, Q6H
     Route: 048
     Dates: start: 20070626
  12. PREVACID [Concomitant]
     Dosage: 30 MG, 2X/DAY
     Dates: start: 20070626
  13. METFORMIN [Concomitant]
     Dosage: UNK
     Route: 048
     Dates: start: 20090201

REACTIONS (1)
  - CEREBROVASCULAR ACCIDENT [None]
